FAERS Safety Report 6534211-6 (Version None)
Quarter: 2010Q1

REPORT INFORMATION
  Report Type: 
  Country: None (occurrence: None)
  Receive Date: 20100112
  Receipt Date: 20091231
  Transmission Date: 20100710
  Serious: Yes (Other)
  Sender: FDA-Public Use
  Company Number: GB-ELI_LILLY_AND_COMPANY-GB200912006356

PATIENT

DRUGS (3)
  1. FLUOXETINE [Suspect]
     Dosage: 20 MG, EACH MORNING
     Route: 064
     Dates: start: 20091127, end: 20091129
  2. AMOXICILLIN [Concomitant]
     Dosage: UNK, UNKNOWN
     Route: 064
  3. LACTULOSE [Concomitant]
     Dosage: UNK, UNKNOWN
     Route: 064

REACTIONS (2)
  - DRUG EXPOSURE DURING PREGNANCY [None]
  - FOETAL HYPOKINESIA [None]
